FAERS Safety Report 7180052-9 (Version None)
Quarter: 2010Q4

REPORT INFORMATION
  Report Type: 
  Country: None (occurrence: None)
  Receive Date: 20101221
  Receipt Date: 20101214
  Transmission Date: 20110411
  Serious: Yes (Other)
  Sender: FDA-Public Use
  Company Number: US-SANOFI-AVENTIS-2010SA076009

PATIENT
  Sex: Female

DRUGS (5)
  1. LANTUS [Suspect]
     Dosage: 34-35 UNITS DAILY
     Route: 058
  2. OPTICLICK [Suspect]
  3. NOVOLOG [Concomitant]
  4. COUMADIN [Concomitant]
  5. PLAVIX [Concomitant]

REACTIONS (2)
  - HYPOGLYCAEMIA [None]
  - MYOCARDIAL INFARCTION [None]
